FAERS Safety Report 6125314-9 (Version None)
Quarter: 2009Q1

REPORT INFORMATION
  Report Type: 
  Country: None (occurrence: None)
  Receive Date: 20090320
  Receipt Date: 20090205
  Transmission Date: 20090719
  Serious: Yes (Other)
  Sender: FDA-Public Use
  Company Number: US-JNJFOC-20090202216

PATIENT
  Sex: Female
  Weight: 60.78 kg

DRUGS (13)
  1. LEVAQUIN [Suspect]
     Indication: PNEUMONIA
     Route: 048
  2. OXYCODONE HCL [Concomitant]
     Route: 065
  3. WARFARIN SODIUM [Concomitant]
     Route: 065
  4. MIRAPEX [Concomitant]
     Route: 065
  5. GABAPENTIN [Concomitant]
     Route: 065
  6. SIMVASTATIN [Concomitant]
     Route: 065
  7. POTASSIUM CHLORIDE [Concomitant]
     Route: 065
  8. PREVACID [Concomitant]
     Route: 065
  9. METHADONE HCL [Concomitant]
     Route: 065
  10. CALCIUM [Concomitant]
     Route: 065
  11. ASCORBIC ACID [Concomitant]
     Route: 065
  12. DIGOXIN [Concomitant]
     Route: 065
  13. LASIX [Concomitant]
     Route: 065

REACTIONS (8)
  - BURNING SENSATION [None]
  - GRIP STRENGTH DECREASED [None]
  - HAND DEFORMITY [None]
  - HYPOKINESIA [None]
  - JOINT RANGE OF MOTION DECREASED [None]
  - PAIN IN EXTREMITY [None]
  - PERIPHERAL COLDNESS [None]
  - SENSORY LOSS [None]
